FAERS Safety Report 23102228 (Version 3)
Quarter: 2024Q1

REPORT INFORMATION
  Report Type: Spontaneous
  Country: CA (occurrence: CA)
  Receive Date: 20231025
  Receipt Date: 20240316
  Transmission Date: 20240409
  Serious: Yes (Other)
  Sender: FDA-Public Use
  Company Number: CA-CELLTRION INC.-2022CA020032

PATIENT

DRUGS (10)
  1. INFLECTRA [Suspect]
     Active Substance: INFLIXIMAB-DYYB
     Indication: Colitis ulcerative
     Dosage: 5 MG/KG WEEK 0,2,6 THEN Q 8 WEEKS
     Route: 042
     Dates: start: 20220613
  2. INFLECTRA [Suspect]
     Active Substance: INFLIXIMAB-DYYB
     Dosage: 5 MG/KG WEEK 0,2,6 THEN Q 8 WEEKS
     Route: 042
     Dates: start: 20220921
  3. INFLECTRA [Suspect]
     Active Substance: INFLIXIMAB-DYYB
     Dosage: 5 MG/KG WEEK 0,2,6 THEN Q 8 WEEKS
     Route: 042
     Dates: start: 20221117
  4. INFLECTRA [Suspect]
     Active Substance: INFLIXIMAB-DYYB
     Dosage: 5 MG/KG WEEK 0,2,6 THEN Q 8 WEEKS
     Route: 042
     Dates: start: 20230105
  5. INFLECTRA [Suspect]
     Active Substance: INFLIXIMAB-DYYB
     Dosage: 5 MG/KG WEEK 0,2,6 THEN Q 8 WEEKS
     Route: 042
     Dates: start: 20230822
  6. INFLECTRA [Suspect]
     Active Substance: INFLIXIMAB-DYYB
     Dosage: 370 MG AFTER 8 WEEKS
     Route: 042
     Dates: start: 20231017
  7. INFLECTRA [Suspect]
     Active Substance: INFLIXIMAB-DYYB
     Dosage: 5 MG/KG, WEEK 0, 2, 6 THEN Q 8 WEEKS
     Route: 042
     Dates: start: 20231212
  8. INFLECTRA [Suspect]
     Active Substance: INFLIXIMAB-DYYB
     Dosage: 350MG, AFTER 11 WEEKS AND 6 DAYS (PRESCRIBED Q 8 WEEKS)
     Route: 042
     Dates: start: 20240304
  9. AZATHIOPRINE [Concomitant]
     Active Substance: AZATHIOPRINE
     Dosage: 1 DF DOSAGE NOT AVAILABLE
     Route: 065
     Dates: start: 2019
  10. OZEMPIC [Concomitant]
     Active Substance: SEMAGLUTIDE
     Dosage: 1 DF

REACTIONS (5)
  - Diabetes mellitus inadequate control [Recovering/Resolving]
  - Rhinorrhoea [Unknown]
  - Cough [Unknown]
  - Weight decreased [Not Recovered/Not Resolved]
  - Inappropriate schedule of product administration [Unknown]

NARRATIVE: CASE EVENT DATE: 20221117
